FAERS Safety Report 17882200 (Version 2)
Quarter: 2022Q2

REPORT INFORMATION
  Report Type: Spontaneous
  Country: FR (occurrence: FR)
  Receive Date: 20200610
  Receipt Date: 20220511
  Transmission Date: 20220721
  Serious: Yes (Other)
  Sender: FDA-Public Use
  Company Number: FR-BAYER-2020-092460

PATIENT
  Age: 35 Year
  Sex: Female

DRUGS (3)
  1. ETHINYL ESTRADIOL\LEVONORGESTREL [Suspect]
     Active Substance: ETHINYL ESTRADIOL\LEVONORGESTREL
     Indication: Contraception
     Dosage: UNK
     Route: 065
  2. ETHINYL ESTRADIOL\LEVONORGESTREL [Suspect]
     Active Substance: ETHINYL ESTRADIOL\LEVONORGESTREL
     Dosage: UNK (50G/30G DURING 6 DAYS; 75G/40G DURING 5 DAYS AND 125G/30G DURING 10 DAYS; FOR 7 YEARS)
     Route: 065
  3. CYPROTERONE [Suspect]
     Active Substance: CYPROTERONE
     Indication: Hirsutism
     Dosage: 50 MILLIGRAM, QD, (8 YEARS)
     Route: 065

REACTIONS (1)
  - Meningioma [Recovering/Resolving]
